FAERS Safety Report 4280910-9 (Version None)
Quarter: 2004Q1

REPORT INFORMATION
  Report Type: 
  Country: None (occurrence: None)
  Receive Date: 20040129
  Receipt Date: 20031226
  Transmission Date: 20041129
  Serious: Yes (Life-Threatening)
  Sender: FDA-Public Use
  Company Number: JP-GLAXOSMITHKLINE-B0318579A

PATIENT
  Age: 21 Year
  Sex: Female
  Weight: 52 kg

DRUGS (7)
  1. PAROXETINE [Suspect]
     Indication: PANIC DISORDER
     Route: 048
     Dates: start: 20020128, end: 20031218
  2. BROTIZOLAM [Concomitant]
     Indication: INSOMNIA
     Dosage: .5MG PER DAY
     Route: 048
     Dates: start: 20031117
  3. ZOLPIDEM TARTRATE [Concomitant]
     Indication: INSOMNIA
     Route: 048
     Dates: start: 20020718, end: 20030213
  4. HALOPERIDOL [Concomitant]
     Indication: DISSOCIATIVE DISORDER
     Dosage: .75MG PER DAY
     Route: 048
     Dates: start: 20030519, end: 20030804
  5. IMIPRAMINE HCL [Concomitant]
     Indication: PANIC DISORDER
     Route: 048
     Dates: start: 20021007, end: 20030616
  6. ETIZOLAM [Concomitant]
     Indication: ANXIETY
     Dosage: 1MG PER DAY
     Route: 048
     Dates: start: 20030707, end: 20031029
  7. CLOMIPRAMINE HYDROCHLORIDE [Concomitant]
     Indication: PANIC DISORDER
     Dosage: 10MG PER DAY
     Route: 048
     Dates: start: 20020328, end: 20020411

REACTIONS (3)
  - BLOOD PRESSURE DECREASED [None]
  - ELECTROCARDIOGRAM QT PROLONGED [None]
  - INTENTIONAL SELF-INJURY [None]
